FAERS Safety Report 6910523-9 (Version None)
Quarter: 2010Q3

REPORT INFORMATION
  Report Type: 
  Country: None (occurrence: None)
  Receive Date: 20100806
  Receipt Date: 20100803
  Transmission Date: 20110219
  Serious: Yes (Hospitalization)
  Sender: FDA-Public Use
  Company Number: US-BRISTOL-MYERS SQUIBB COMPANY-15224173

PATIENT
  Age: 72 Year
  Sex: Female

DRUGS (5)
  1. SINEMET [Suspect]
     Dosage: STARTED 10 YRS AGO
  2. SINEMET CR [Suspect]
     Dosage: STARTED 10 YRS AGO
  3. AMANTADINE HCL [Concomitant]
  4. PANCREATIC ENZYME [Concomitant]
  5. MIRAPEX [Concomitant]

REACTIONS (1)
  - PANCREATICODUODENECTOMY [None]
